FAERS Safety Report 8937707 (Version 1)
Quarter: 2012Q4

REPORT INFORMATION
  Report Type: 
  Country: IT (occurrence: IT)
  Receive Date: 20121130
  Receipt Date: 20121130
  Transmission Date: 20130627
  Serious: Yes (Other)
  Sender: FDA-Public Use
  Company Number: IT-PFIZER INC-2012294742

PATIENT
  Age: 63 Year
  Sex: Male

DRUGS (6)
  1. RAMIPRIL-ZENTIVA [Suspect]
     Indication: HYPERTENSION
     Dosage: 5 mg, daily
     Route: 048
     Dates: start: 20121004, end: 20121109
  2. ASCRIPTIN [Concomitant]
     Indication: ANTIPLATELET THERAPY
     Dosage: UNK
  3. LUCEN [Concomitant]
     Dosage: UNK
  4. SIMVASTATINA MYLAN [Concomitant]
     Dosage: UNK
  5. TILDIEM [Concomitant]
     Dosage: UNK
  6. METFORMINA MYLAN [Concomitant]
     Dosage: UNK

REACTIONS (1)
  - VIIth nerve paralysis [Recovering/Resolving]
